FAERS Safety Report 9439140 (Version 1)
Quarter: 2013Q3

REPORT INFORMATION
  Report Type: Spontaneous
  Country: AU (occurrence: AU)
  Receive Date: 20130802
  Receipt Date: 20130802
  Transmission Date: 20140515
  Serious: Yes (Hospitalization, Other)
  Sender: FDA-Public Use
  Company Number: AU-ABBOTT-13P-008-1099512-00

PATIENT
  Age: 34 Year
  Sex: Female
  Weight: 122 kg

DRUGS (2)
  1. HUMIRA [Suspect]
     Indication: CROHN^S DISEASE
     Route: 058
     Dates: start: 20110812
  2. ZOLOFT [Concomitant]
     Indication: DEPRESSION

REACTIONS (3)
  - Fistula discharge [Unknown]
  - Crohn^s disease [Recovering/Resolving]
  - Malaise [Unknown]
